FAERS Safety Report 9200253 (Version 1)
Quarter: 2013Q1

REPORT INFORMATION
  Report Type: Spontaneous
  Country: US (occurrence: US)
  Receive Date: 20130329
  Receipt Date: 20130329
  Transmission Date: 20140127
  Serious: Yes (Other)
  Sender: FDA-Public Use
  Company Number: US-MERCK-1303USA011402

PATIENT
  Sex: Female

DRUGS (1)
  1. FOSAMAX [Suspect]
     Dosage: UNK
     Route: 048
     Dates: end: 201007

REACTIONS (2)
  - Femur fracture [Unknown]
  - Femur fracture [Unknown]
